FAERS Safety Report 20560624 (Version 1)
Quarter: 2022Q1

REPORT INFORMATION
  Report Type: Spontaneous
  Country: FR (occurrence: FR)
  Receive Date: 20220307
  Receipt Date: 20220307
  Transmission Date: 20220423
  Serious: Yes (Hospitalization)
  Sender: FDA-Public Use
  Company Number: None

PATIENT
  Age: 63 Year
  Sex: Male

DRUGS (5)
  1. COMIRNATY [Suspect]
     Active Substance: TOZINAMERAN
     Indication: COVID-19 immunisation
     Dosage: DOSE 3 (BOOSTER), SINGLE ), SINGLE
     Route: 030
     Dates: start: 202111, end: 202111
  2. TAHOR [Suspect]
     Active Substance: ATORVASTATIN CALCIUM
     Indication: Hypercholesterolaemia
     Dosage: 1 TABLET OF 80MG IN THE EVENING
     Route: 048
     Dates: start: 201902, end: 20220111
  3. SERETIDE [Concomitant]
     Active Substance: FLUTICASONE PROPIONATE\SALMETEROL XINAFOATE
     Dosage: UNK
  4. IRBESARTAN [Concomitant]
     Active Substance: IRBESARTAN
     Dosage: UNK
  5. FUNGIZONE [Concomitant]
     Active Substance: AMPHOTERICIN B
     Dosage: UNK

REACTIONS (16)
  - Necrotising myositis [Not Recovered/Not Resolved]
  - Myopathy toxic [Not Recovered/Not Resolved]
  - Asthenia [Unknown]
  - Muscular weakness [Unknown]
  - Gait disturbance [Unknown]
  - Loss of personal independence in daily activities [Unknown]
  - Mastication disorder [Unknown]
  - Aspartate aminotransferase increased [Unknown]
  - Aldolase increased [Unknown]
  - Blood creatine phosphokinase increased [Unknown]
  - Alanine aminotransferase increased [Unknown]
  - Troponin increased [Unknown]
  - Blood thyroid stimulating hormone decreased [Unknown]
  - Antibody test positive [Unknown]
  - Goitre [Unknown]
  - Neurogenic shock [Unknown]

NARRATIVE: CASE EVENT DATE: 20210112
